FAERS Safety Report 8255884-6 (Version None)
Quarter: 2012Q2

REPORT INFORMATION
  Report Type: 
  Country: None (occurrence: None)
  Receive Date: 20120403
  Receipt Date: 20120321
  Transmission Date: 20120825
  Serious: Yes (Life-Threatening, Hospitalization)
  Sender: FDA-Public Use
  Company Number: DE-ROCHE-1039721

PATIENT
  Age: 77 Year
  Sex: Male
  Weight: 78 kg

DRUGS (11)
  1. OMEPRAZOLE [Concomitant]
     Route: 065
     Dates: start: 20120124
  2. METAMIZOL [Concomitant]
     Route: 065
     Dates: start: 20120124
  3. TILIDINE + NALOXONE [Concomitant]
     Dosage: 400/32 MG
     Route: 065
     Dates: start: 20120124
  4. POLYETHYLENE GLYCOL [Concomitant]
     Dosage: DOSE:1
     Route: 065
     Dates: start: 20120124
  5. VEMURAFENIB [Suspect]
     Route: 048
     Dates: start: 20120303
  6. METOPROLOL TARTRATE [Concomitant]
     Route: 065
     Dates: start: 20120124
  7. ASPIRIN [Concomitant]
     Route: 065
     Dates: start: 20120124
  8. RAMIPRIL [Concomitant]
     Route: 065
     Dates: start: 20120124
  9. VEMURAFENIB [Suspect]
     Indication: MALIGNANT MELANOMA
     Route: 048
     Dates: start: 20120130, end: 20120209
  10. PREGABALIN [Concomitant]
     Route: 065
     Dates: start: 20120124
  11. IBUPROFEN [Concomitant]
     Route: 065
     Dates: start: 20120124

REACTIONS (2)
  - CARDIOPULMONARY FAILURE [None]
  - ELECTROCARDIOGRAM QT PROLONGED [None]
